FAERS Safety Report 15277633 (Version 1)
Quarter: 2018Q3

REPORT INFORMATION
  Report Type: Spontaneous
  Country: US (occurrence: US)
  Receive Date: 20180814
  Receipt Date: 20180814
  Transmission Date: 20181010
  Serious: No
  Sender: FDA-Public Use
  Company Number: US-BAYER-2018-150740

PATIENT

DRUGS (11)
  1. HUMAMET [Concomitant]
     Indication: PRURITUS
     Dosage: UNK
     Dates: start: 201504, end: 201505
  2. CIPRO [Concomitant]
     Active Substance: CIPROFLOXACIN HYDROCHLORIDE
     Dosage: UNK
  3. CIALIS [Concomitant]
     Active Substance: TADALAFIL
  4. CORTICOSTEROID NOS [Concomitant]
     Active Substance: CORTICOSTEROID NOS
  5. XYLOCAIN [LIDOCAINE] [Concomitant]
  6. ARAVA [Concomitant]
     Active Substance: LEFLUNOMIDE
     Indication: NAUSEA
     Dosage: UNK
     Dates: start: 201502, end: 201503
  7. NAPROXEN. [Concomitant]
     Active Substance: NAPROXEN
  8. PENICILLAMIN [Concomitant]
  9. RIBON [Concomitant]
  10. ALEVE [Suspect]
     Active Substance: NAPROXEN SODIUM
     Dosage: UNK
  11. METHOTREXATE. [Concomitant]
     Active Substance: METHOTREXATE
     Indication: PNEUMONITIS
     Dosage: UNK
     Dates: start: 201501, end: 201502

REACTIONS (1)
  - Drug hypersensitivity [Unknown]
